FAERS Safety Report 18653181 (Version 2)
Quarter: 2020Q4

REPORT INFORMATION
  Report Type: Spontaneous
  Country: US (occurrence: US)
  Receive Date: 20201222
  Receipt Date: 20201225
  Transmission Date: 20210114
  Serious: Yes (Hospitalization)
  Sender: FDA-Public Use
  Company Number: US-ROCHE-2737189

PATIENT
  Age: 88 Year
  Sex: Male

DRUGS (7)
  1. DILTIAZEM ER [Concomitant]
     Active Substance: DILTIAZEM
  2. BENZONATATE. [Concomitant]
     Active Substance: BENZONATATE
  3. DARIFENACIN. [Concomitant]
     Active Substance: DARIFENACIN
  4. AMOXICILLIN. [Concomitant]
     Active Substance: AMOXICILLIN
  5. ESBRIET [Suspect]
     Active Substance: PIRFENIDONE
     Indication: ILLNESS
     Dosage: 3 CAPSULES TWICE A DAY
     Route: 048
     Dates: start: 20180123
  6. CLARITHROMYCIN. [Concomitant]
     Active Substance: CLARITHROMYCIN
  7. DEXAMETHASONE. [Concomitant]
     Active Substance: DEXAMETHASONE

REACTIONS (4)
  - Off label use [Unknown]
  - Dehydration [Unknown]
  - Heart rate increased [Unknown]
  - Intentional product use issue [Unknown]

NARRATIVE: CASE EVENT DATE: 20201212
